FAERS Safety Report 7518120-1 (Version None)
Quarter: 2011Q2

REPORT INFORMATION
  Report Type: 
  Country: None (occurrence: None)
  Receive Date: 20110602
  Receipt Date: 20110516
  Transmission Date: 20111010
  Serious: No
  Sender: FDA-Public Use
  Company Number: US-B.I. PHARMACEUTICALS,INC./RIDGEFIELD-2011-BP-13131BP

PATIENT
  Age: 73 Year
  Sex: Female

DRUGS (2)
  1. PRADAXA [Suspect]
     Indication: ATRIAL FIBRILLATION
     Dosage: 300 MG
     Route: 048
     Dates: start: 20110505
  2. METOPROLOL TARTRATE [Suspect]
     Indication: ATRIAL FIBRILLATION
     Dosage: 50 MG

REACTIONS (3)
  - MUSCLE SPASMS [None]
  - FLATULENCE [None]
  - ERUCTATION [None]
